FAERS Safety Report 15400989 (Version 4)
Quarter: 2019Q1

REPORT INFORMATION
  Report Type: Report from Study
  Country: US (occurrence: US)
  Receive Date: 20180919
  Receipt Date: 20190117
  Transmission Date: 20190417
  Serious: Yes (Hospitalization)
  Sender: FDA-Public Use
  Company Number: US-JNJFOC-20180915808

PATIENT
  Age: 72 Year
  Sex: Male

DRUGS (18)
  1. PRADAXA [Suspect]
     Active Substance: DABIGATRAN ETEXILATE MESYLATE
     Indication: DEEP VEIN THROMBOSIS
     Dates: start: 201808, end: 20180904
  2. VITAMIN D3 [Concomitant]
     Active Substance: CHOLECALCIFEROL
  3. IMBRUVICA [Suspect]
     Active Substance: IBRUTINIB
     Indication: CHRONIC LYMPHOCYTIC LEUKAEMIA
     Route: 048
     Dates: start: 2018
  4. VITAMIN C [Concomitant]
     Active Substance: ASCORBIC ACID
  5. IMBRUVICA [Suspect]
     Active Substance: IBRUTINIB
     Indication: CHRONIC LYMPHOCYTIC LEUKAEMIA
     Route: 048
     Dates: start: 20180913
  6. PRAVASTATIN. [Concomitant]
     Active Substance: PRAVASTATIN
  7. PREDNISONE. [Concomitant]
     Active Substance: PREDNISONE
  8. VALACYCLOVIR [Concomitant]
     Active Substance: VALACYCLOVIR HYDROCHLORIDE
  9. OMEGA 3 [Concomitant]
     Active Substance: OMEGA-3 FATTY ACIDS
  10. METOPROLOL. [Concomitant]
     Active Substance: METOPROLOL
  11. FLUOCINOLONE [Concomitant]
     Active Substance: FLUOCINOLONE
  12. BYSTOLIC [Concomitant]
     Active Substance: NEBIVOLOL HYDROCHLORIDE
  13. OXYCODONE AND ASPIRIN [Concomitant]
     Active Substance: ASPIRIN\OXYCODONE HYDROCHLORIDE
  14. LASIX [Concomitant]
     Active Substance: FUROSEMIDE
  15. IMBRUVICA [Suspect]
     Active Substance: IBRUTINIB
     Indication: CHRONIC LYMPHOCYTIC LEUKAEMIA
     Route: 048
     Dates: start: 20180827, end: 2018
  16. DOXAZOSIN [Concomitant]
     Active Substance: DOXAZOSIN\DOXAZOSIN MESYLATE
  17. FENTANYL. [Concomitant]
     Active Substance: FENTANYL
  18. ULORIC [Concomitant]
     Active Substance: FEBUXOSTAT

REACTIONS (6)
  - Incorrect dose administered [Unknown]
  - Bone pain [Recovering/Resolving]
  - Off label use [Unknown]
  - Myalgia [Unknown]
  - Haematuria [Recovered/Resolved]
  - Blood creatinine increased [Not Recovered/Not Resolved]

NARRATIVE: CASE EVENT DATE: 20180827
